FAERS Safety Report 8427890-X (Version None)
Quarter: 2012Q2

REPORT INFORMATION
  Report Type: 
  Country: None (occurrence: None)
  Receive Date: 20120611
  Receipt Date: 20120529
  Transmission Date: 20120825
  Serious: Yes (Hospitalization)
  Sender: FDA-Public Use
  Company Number: AU-CELGENEUS-008-50794-11090549

PATIENT
  Sex: Male
  Weight: 84 kg

DRUGS (10)
  1. LBH [Suspect]
     Dosage: 30 MILLIGRAM
     Route: 065
     Dates: start: 20111014
  2. SERTRALINE HYDROCHLORIDE [Concomitant]
     Route: 065
  3. METOCLOPRAMIDE [Concomitant]
     Route: 065
  4. VIDAZA [Suspect]
     Indication: ACUTE MYELOID LEUKAEMIA
     Dosage: 75 MILLIGRAM/SQ. METER
     Route: 065
     Dates: start: 20110829, end: 20110907
  5. PANTOPRAZOLE [Concomitant]
     Route: 065
  6. LBH [Suspect]
     Dosage: 30 MILLIGRAM
     Route: 065
     Dates: start: 20110902, end: 20110907
  7. TEMAZEPAM [Concomitant]
     Route: 065
  8. TRANEXAMIC ACID [Concomitant]
     Route: 065
  9. VIDAZA [Suspect]
     Dosage: 75 MILLIGRAM/SQ. METER
     Route: 065
     Dates: start: 20111010
  10. DIAZEPAM [Concomitant]
     Route: 065

REACTIONS (6)
  - FEBRILE NEUTROPENIA [None]
  - DEHYDRATION [None]
  - CHEST PAIN [None]
  - NAUSEA [None]
  - DECREASED APPETITE [None]
  - DIARRHOEA [None]
